FAERS Safety Report 7637360-4 (Version None)
Quarter: 2011Q3

REPORT INFORMATION
  Report Type: 
  Country: None (occurrence: None)
  Receive Date: 20110726
  Receipt Date: 20110719
  Transmission Date: 20111222
  Serious: Yes (Hospitalization)
  Sender: FDA-Public Use
  Company Number: BR-PFIZER INC-2011026653

PATIENT
  Age: 18 Year
  Sex: Female
  Weight: 50 kg

DRUGS (4)
  1. SCOPOLAMINE [Concomitant]
  2. DEPO-PROVERA [Suspect]
     Indication: MENSTRUAL DISCOMFORT
  3. DEPO-PROVERA [Suspect]
     Indication: CONTRACEPTION
     Dosage: 150 MG, EVERY 3 MONTHS
     Route: 030
     Dates: start: 19990101, end: 20110101
  4. DEPO-PROVERA [Suspect]
     Indication: PREMENSTRUAL SYNDROME

REACTIONS (19)
  - SWELLING [None]
  - PELVIC PAIN [None]
  - FEELING ABNORMAL [None]
  - WEIGHT INCREASED [None]
  - METRORRHAGIA [None]
  - MALAISE [None]
  - GASTRITIS [None]
  - AMENORRHOEA [None]
  - NAUSEA [None]
  - ABDOMINAL PAIN UPPER [None]
  - URINARY TRACT INFECTION [None]
  - VOMITING [None]
  - BREAST ENLARGEMENT [None]
  - BREAST SWELLING [None]
  - RETCHING [None]
  - HEADACHE [None]
  - CONDITION AGGRAVATED [None]
  - DIZZINESS [None]
  - BREAST PAIN [None]
